FAERS Safety Report 13325875 (Version 2)
Quarter: 2017Q2

REPORT INFORMATION
  Report Type: Spontaneous
  Country: US (occurrence: US)
  Receive Date: 20170310
  Receipt Date: 20170621
  Transmission Date: 20170830
  Serious: Yes (Hospitalization)
  Sender: FDA-Public Use
  Company Number: US-VIFOR (INTERNATIONAL) INC.-VIT-2017-02370

PATIENT
  Age: 54 Year
  Sex: Male

DRUGS (14)
  1. ESCITALOPRAM [Concomitant]
     Active Substance: ESCITALOPRAM OXALATE
     Dates: start: 20160613
  2. VELTASSA [Suspect]
     Active Substance: PATIROMER
     Indication: HYPERKALAEMIA
     Route: 048
     Dates: end: 201610
  3. VELTASSA [Suspect]
     Active Substance: PATIROMER
     Route: 048
     Dates: start: 201610
  4. DEPAKOTE ER [Concomitant]
     Active Substance: DIVALPROEX SODIUM
     Dates: start: 20160613
  5. ASCORBIC ACID. [Concomitant]
     Active Substance: ASCORBIC ACID
     Dates: start: 20160613
  6. BENZTROPINE [Concomitant]
     Active Substance: BENZTROPINE
     Dates: start: 20160613
  7. CLOZAPINE. [Concomitant]
     Active Substance: CLOZAPINE
     Dates: start: 20160613
  8. MYLANTA [Concomitant]
     Active Substance: ALUMINUM HYDROXIDE\DIMETHICONE\MAGNESIUM HYDROXIDE
     Dates: start: 20160613
  9. POLYETH GLYC PCVV 3350 NF [Concomitant]
     Dates: start: 20160613
  10. LORAZEPAM. [Concomitant]
     Active Substance: LORAZEPAM
     Dates: start: 20160613
  11. ASCORBIC ACID. [Concomitant]
     Active Substance: ASCORBIC ACID
     Dates: start: 20160613
  12. COLECALCIFEROL [Concomitant]
     Active Substance: CHOLECALCIFEROL
     Dates: start: 20160613
  13. ABILIFY [Concomitant]
     Active Substance: ARIPIPRAZOLE
     Dates: start: 20160613
  14. AMLODIPINE [Concomitant]
     Active Substance: AMLODIPINE BESYLATE
     Dates: start: 20160613

REACTIONS (2)
  - Cardiac failure congestive [Unknown]
  - Hospice care [Unknown]

NARRATIVE: CASE EVENT DATE: 20170214
